FAERS Safety Report 16405633 (Version 4)
Quarter: 2019Q4

REPORT INFORMATION
  Report Type: Spontaneous
  Country: IL (occurrence: IL)
  Receive Date: 20190607
  Receipt Date: 20191001
  Transmission Date: 20200122
  Serious: Yes (Death, Other)
  Sender: FDA-Public Use
  Company Number: IL-JNJFOC-20190539350

PATIENT
  Age: 41 Year
  Sex: Female

DRUGS (1)
  1. ERDAFITINIB. [Suspect]
     Active Substance: ERDAFITINIB
     Indication: CHOLANGIOCARCINOMA
     Route: 048
     Dates: start: 20190328

REACTIONS (9)
  - Death [Fatal]
  - Hyperphosphataemia [Unknown]
  - Skin necrosis [Recovered/Resolved]
  - Dry eye [Recovered/Resolved]
  - Alopecia [Unknown]
  - Stomatitis [Recovered/Resolved]
  - Ear pain [Recovered/Resolved]
  - Eye disorder [Unknown]
  - Cachexia [Not Recovered/Not Resolved]

NARRATIVE: CASE EVENT DATE: 201906
